FAERS Safety Report 5577432-1 (Version None)
Quarter: 2007Q4

REPORT INFORMATION
  Report Type: 
  Country: None (occurrence: None)
  Receive Date: 20071228
  Receipt Date: 20071217
  Transmission Date: 20080405
  Serious: Yes (Other)
  Sender: FDA-Public Use
  Company Number: US-PFIZER INC-2007106067

PATIENT
  Sex: Female
  Weight: 57.6 kg

DRUGS (19)
  1. NEURONTIN [Suspect]
     Indication: FIBROMYALGIA
     Dates: start: 20010101, end: 20010101
  2. CORTICOSTEROIDS [Suspect]
     Indication: FIBROMYALGIA
  3. CORTICOSTEROIDS [Suspect]
     Indication: OSTEOARTHRITIS
  4. SOMA [Concomitant]
  5. PRILOSEC [Concomitant]
  6. UREA [Concomitant]
  7. OXYCONTIN [Concomitant]
  8. ADVAIR DISKUS 100/50 [Concomitant]
  9. RITALIN [Concomitant]
  10. IBANDRONATE SODIUM [Concomitant]
  11. ACETYLSALICYLIC ACID SRT [Concomitant]
  12. BENADRYL [Concomitant]
  13. ZYRTEC [Concomitant]
  14. DRISDOL [Concomitant]
  15. COMPAZINE [Concomitant]
  16. NYSTATIN [Concomitant]
  17. MIDRIN [Concomitant]
  18. ALBUTEROL [Concomitant]
  19. DONNATAL [Concomitant]

REACTIONS (5)
  - ALOPECIA [None]
  - DRUG INEFFECTIVE [None]
  - OSTEOPOROSIS [None]
  - VISUAL ACUITY REDUCED [None]
  - WEIGHT INCREASED [None]
